FAERS Safety Report 6915061-5 (Version None)
Quarter: 2010Q3

REPORT INFORMATION
  Report Type: 
  Country: None (occurrence: None)
  Receive Date: 20100809
  Receipt Date: 20100726
  Transmission Date: 20110219
  Serious: Yes (Hospitalization)
  Sender: FDA-Public Use
  Company Number: US-MYLANLABS-2010S1013394

PATIENT
  Age: 48 Year
  Sex: Female

DRUGS (3)
  1. LANSOPRAZOLE [Suspect]
     Indication: HELICOBACTER INFECTION
     Route: 065
  2. CALCIUM CARBONATE [Concomitant]
     Dosage: 1800MG OF ELEMENTAL CALCIUM
     Route: 065
  3. COLECALCIFEROL [Concomitant]
     Route: 065

REACTIONS (3)
  - CONVULSION [None]
  - HYPOCALCAEMIA [None]
  - HYPOPARATHYROIDISM [None]
